FAERS Safety Report 9153962 (Version 2)
Quarter: 2014Q1

REPORT INFORMATION
  Report Type: Spontaneous
  Country: US (occurrence: US)
  Receive Date: 20130311
  Receipt Date: 20140314
  Transmission Date: 20141002
  Serious: Yes (Hospitalization)
  Sender: FDA-Public Use
  Company Number: US-ASTELLAS-2013US002569

PATIENT
  Age: 84 Year
  Sex: Male

DRUGS (2)
  1. PROGRAF [Suspect]
     Indication: RENAL TRANSPLANT
     Dosage: 1 MG, Q12 HOURS
     Route: 048
     Dates: start: 20050114
  2. PROGRAF [Suspect]
     Indication: TYPE 2 DIABETES MELLITUS

REACTIONS (3)
  - Off label use [Unknown]
  - Hospitalisation [Unknown]
  - Investigation [Unknown]
